FAERS Safety Report 5202329-6 (Version None)
Quarter: 2006Q4

REPORT INFORMATION
  Report Type: 
  Country: None (occurrence: None)
  Receive Date: 20061012
  Receipt Date: 20060116
  Transmission Date: 20070319
  Serious: Yes (Other)
  Sender: FDA-Public Use
  Company Number: US-JNJFOC-20060105806

PATIENT

DRUGS (1)
  1. NATRECOR [Suspect]
     Indication: CARDIAC FAILURE
     Dosage: 2 UG/KG BOLUS FOLLOWED BY AN INFUSION OF 0.01 UG/KG/MIN

REACTIONS (1)
  - HYPOTENSION [None]
